FAERS Safety Report 9664556 (Version 3)
Quarter: 2014Q1

REPORT INFORMATION
  Report Type: Spontaneous
  Country: ZA (occurrence: ZA)
  Receive Date: 20131101
  Receipt Date: 20140318
  Transmission Date: 20141002
  Serious: Yes (Hospitalization, Other)
  Sender: FDA-Public Use
  Company Number: ZA-ABBVIE-13P-143-1162569-00

PATIENT
  Sex: Male

DRUGS (2)
  1. HUMIRA [Suspect]
     Indication: PRODUCT USED FOR UNKNOWN INDICATION
     Route: 058
     Dates: start: 2012, end: 20131030
  2. HUMIRA [Suspect]
     Route: 058
     Dates: start: 20140312

REACTIONS (2)
  - Bladder transitional cell carcinoma [Recovered/Resolved]
  - Haematuria [Recovered/Resolved]
